FAERS Safety Report 12742035 (Version 1)
Quarter: 2016Q3

REPORT INFORMATION
  Report Type: Spontaneous
  Country: None (occurrence: None)
  Receive Date: 20160913
  Receipt Date: 20160913
  Transmission Date: 20161109
  Serious: Yes (Death)
  Sender: FDA-Public Use
  Company Number: US-ALSI-201600239

PATIENT
  Age: 3 Year
  Sex: Female

DRUGS (5)
  1. NITROUS OXIDE. [Suspect]
     Active Substance: NITROUS OXIDE
     Indication: ANALGESIC THERAPY
     Route: 055
  2. HYDROXYZINE [Concomitant]
     Active Substance: HYDROXYZINE\HYDROXYZINE HYDROCHLORIDE
  3. LIDOCAINE; EPINEPHRINE [Concomitant]
  4. CHLORAL HYDRATE [Concomitant]
     Active Substance: CHLORAL HYDRATE
  5. DEMEROL [Suspect]
     Active Substance: MEPERIDINE HYDROCHLORIDE
     Indication: ANALGESIC THERAPY

REACTIONS (4)
  - Myocardial infarction [None]
  - Labelled drug-drug interaction medication error [None]
  - Procedural complication [None]
  - Coma [None]

NARRATIVE: CASE EVENT DATE: 2014
